FAERS Safety Report 6618415-X (Version None)
Quarter: 2010Q1

REPORT INFORMATION
  Report Type: 
  Country: None (occurrence: None)
  Receive Date: 20100308
  Receipt Date: 20100303
  Transmission Date: 20100710
  Serious: Yes (Hospitalization)
  Sender: FDA-Public Use
  Company Number: B0637330A

PATIENT
  Sex: Female

DRUGS (10)
  1. AUGMENTIN [Suspect]
     Indication: DRUG USE FOR UNKNOWN INDICATION
     Route: 048
     Dates: start: 20091118, end: 20091125
  2. PREVISCAN [Suspect]
     Indication: DRUG USE FOR UNKNOWN INDICATION
     Dosage: 15MG PER DAY
     Route: 048
     Dates: end: 20091127
  3. COAPROVEL [Concomitant]
     Indication: DRUG USE FOR UNKNOWN INDICATION
     Route: 065
  4. CORDARONE [Concomitant]
     Route: 065
  5. PRAVASTATIN [Concomitant]
     Route: 065
  6. BECLOMETHASONE DIPROPIONATE [Concomitant]
     Route: 065
  7. VENTOLIN [Concomitant]
     Route: 065
  8. FORADIL [Concomitant]
     Route: 065
  9. DIMETANE [Concomitant]
     Route: 065
     Dates: start: 20091118
  10. DAFALGAN [Concomitant]
     Route: 065
     Dates: start: 20091118

REACTIONS (8)
  - ANAEMIA [None]
  - DRUG INTERACTION [None]
  - DYSSTASIA [None]
  - HAEMATOMA [None]
  - INTERNATIONAL NORMALISED RATIO INCREASED [None]
  - MUSCLE HAEMORRHAGE [None]
  - PAIN [None]
  - RENAL FAILURE ACUTE [None]
